FAERS Safety Report 25637848 (Version 2)
Quarter: 2025Q4

REPORT INFORMATION
  Report Type: Spontaneous
  Country: US (occurrence: US)
  Receive Date: 20250804
  Receipt Date: 20251009
  Transmission Date: 20260117
  Serious: No
  Sender: ROCHE
  Company Number: US-ROCHE-10000353674

PATIENT
  Age: 45 Year
  Sex: Male

DRUGS (4)
  1. HEMLIBRA [Suspect]
     Active Substance: EMICIZUMAB-KXWH
     Indication: Factor VIII deficiency
     Dosage: STRENGTH: 12MG/0.4ML  AND  60MG/0.4ML
     Route: 058
     Dates: start: 202504
  2. HEMLIBRA [Suspect]
     Active Substance: EMICIZUMAB-KXWH
     Dosage: STRENGTH: 12MG/0.4ML  AND  60MG/0.4ML
     Route: 058
     Dates: start: 202504
  3. HEMLIBRA [Suspect]
     Active Substance: EMICIZUMAB-KXWH
     Dosage: STRENGTH: 12MG/0.4ML AND 60MG/0.4ML
     Route: 058
     Dates: start: 202504
  4. CELEBREX [Concomitant]
     Active Substance: CELECOXIB

REACTIONS (3)
  - Haemorrhage [Recovered/Resolved]
  - Contusion [Unknown]
  - Haemorrhage [Recovered/Resolved]

NARRATIVE: CASE EVENT DATE: 20250913
